FAERS Safety Report 15088584 (Version 1)
Quarter: 2018Q2

REPORT INFORMATION
  Report Type: Spontaneous
  Country: US (occurrence: US)
  Receive Date: 20180629
  Receipt Date: 20180629
  Transmission Date: 20180711
  Serious: Yes (Hospitalization, Other)
  Sender: FDA-Public Use
  Company Number: US-JNJFOC-20180621866

PATIENT
  Age: 45 Year
  Sex: Male

DRUGS (8)
  1. METOPROLOL. [Concomitant]
     Active Substance: METOPROLOL
     Indication: PORTAL HYPERTENSION
     Dosage: ONE IN THE MORNING AND ONE AT NIGHT
     Route: 065
  2. HUMULIN N [Concomitant]
     Active Substance: INSULIN HUMAN
     Indication: DIABETES MELLITUS
     Dosage: 50 UNITS IN THE MORNING AND 50 UNITS AT NIGHT
     Route: 065
  3. ITRACONAZOLE. [Suspect]
     Active Substance: ITRACONAZOLE
     Indication: SARCOIDOSIS
     Dosage: 2 CAPSULES IN THE MORNING AND 2 AT NIGHT
     Route: 065
     Dates: start: 2018, end: 201805
  4. RANITIDINE. [Concomitant]
     Active Substance: RANITIDINE
     Dosage: ONE IN THE MORNING AND ONE AT NIGHT. IT IS LIKE PEPCID OR ZANTAC
     Route: 065
  5. HUMULIN R [Concomitant]
     Active Substance: INSULIN HUMAN
     Indication: DIABETES MELLITUS
     Route: 065
  6. METFORMIN [Concomitant]
     Active Substance: METFORMIN HYDROCHLORIDE
     Indication: DIABETES MELLITUS
     Dosage: ONE IN THE MORNING AND ONCE AT NIGHT
     Route: 065
  7. ALBUTEROL. [Concomitant]
     Active Substance: ALBUTEROL
     Route: 065
  8. ALBUTEROL. [Concomitant]
     Active Substance: ALBUTEROL
     Route: 055

REACTIONS (2)
  - Hepatic function abnormal [Recovering/Resolving]
  - Cardiac failure congestive [Not Recovered/Not Resolved]

NARRATIVE: CASE EVENT DATE: 201805
